FAERS Safety Report 17657234 (Version 3)
Quarter: 2020Q4

REPORT INFORMATION
  Report Type: Report from Study
  Country: GB (occurrence: GB)
  Receive Date: 20200410
  Receipt Date: 20201001
  Transmission Date: 20210113
  Serious: Yes (Other)
  Sender: FDA-Public Use
  Company Number: NVSC2020GB096021

PATIENT
  Sex: Female

DRUGS (1)
  1. COSENTYX [Suspect]
     Active Substance: SECUKINUMAB
     Indication: ANKYLOSING SPONDYLITIS
     Dosage: 150 MG, QMO
     Route: 058
     Dates: start: 20190619

REACTIONS (10)
  - Injection site mass [Unknown]
  - Inappropriate schedule of product administration [Unknown]
  - Insomnia [Unknown]
  - Meningitis [Unknown]
  - Arthralgia [Unknown]
  - Product quality issue [Unknown]
  - Wrong technique in device usage process [Unknown]
  - Musculoskeletal pain [Unknown]
  - Needle issue [Unknown]
  - Drug ineffective [Unknown]

NARRATIVE: CASE EVENT DATE: 202001
